FAERS Safety Report 14699961 (Version 1)
Quarter: 2018Q1

REPORT INFORMATION
  Report Type: Spontaneous
  Country: US (occurrence: US)
  Receive Date: 20180329
  Receipt Date: 20180329
  Transmission Date: 20180509
  Serious: No
  Sender: FDA-Public Use
  Company Number: None

PATIENT
  Age: 62 Year
  Sex: Female
  Weight: 61.2 kg

DRUGS (5)
  1. VITAMIN B12 [Concomitant]
     Active Substance: CYANOCOBALAMIN
  2. BIOTIN [Concomitant]
     Active Substance: BIOTIN
  3. GINKO BILOB [Concomitant]
  4. LETROZOLE. [Concomitant]
     Active Substance: LETROZOLE
  5. IBRANCE [Suspect]
     Active Substance: PALBOCICLIB
     Indication: BREAST CANCER
     Route: 048
     Dates: start: 20180131, end: 20180329

REACTIONS (6)
  - Pain [None]
  - Diarrhoea [None]
  - Muscle spasms [None]
  - Decreased appetite [None]
  - Chills [None]
  - Asthenia [None]

NARRATIVE: CASE EVENT DATE: 20180329
